FAERS Safety Report 15770175 (Version 2)
Quarter: 2019Q1

REPORT INFORMATION
  Report Type: Spontaneous
  Country: US (occurrence: US)
  Receive Date: 20181228
  Receipt Date: 20190204
  Transmission Date: 20190417
  Serious: No
  Sender: FDA-Public Use
  Company Number: US-PFIZER INC-2018532945

PATIENT
  Age: 30 Year
  Sex: Female

DRUGS (1)
  1. EUCRISA [Suspect]
     Active Substance: CRISABOROLE
     Indication: ECZEMA
     Dosage: UNK, 1X/DAY (TO ACTIVE ECZEMA  AREAS FACE)
     Route: 061
     Dates: start: 20180817, end: 20181214

REACTIONS (3)
  - Eczema [Unknown]
  - Drug ineffective [Unknown]
  - Application site pain [Unknown]

NARRATIVE: CASE EVENT DATE: 20181214
